FAERS Safety Report 23679794 (Version 1)
Quarter: 2024Q1

REPORT INFORMATION
  Report Type: Spontaneous
  Country: US (occurrence: US)
  Receive Date: 20240327
  Receipt Date: 20240327
  Transmission Date: 20240410
  Serious: No
  Sender: FDA-Public Use
  Company Number: US-INCYTE CORPORATION-2024IN002858

PATIENT

DRUGS (1)
  1. JAKAFI [Suspect]
     Active Substance: RUXOLITINIB
     Dosage: 20 MILLIGRAM, BID
     Route: 048
     Dates: start: 202402

REACTIONS (6)
  - Pain [Unknown]
  - Decreased activity [Unknown]
  - Stomatitis [Unknown]
  - Eating disorder [Unknown]
  - Fluid intake reduced [Unknown]
  - Palmar-plantar erythrodysaesthesia syndrome [Unknown]
